FAERS Safety Report 17057618 (Version 2)
Quarter: 2019Q4

REPORT INFORMATION
  Report Type: Report from Study
  Country: GB (occurrence: US)
  Receive Date: 20191121
  Receipt Date: 20191210
  Transmission Date: 20200122
  Serious: Yes (Other)
  Sender: FDA-Public Use
  Company Number: US-ASTELLAS-2019US045921

PATIENT
  Sex: Female

DRUGS (3)
  1. TARCEVA [Suspect]
     Active Substance: ERLOTINIB HYDROCHLORIDE
     Indication: LUNG NEOPLASM MALIGNANT
  2. TARCEVA [Suspect]
     Active Substance: ERLOTINIB HYDROCHLORIDE
     Indication: BARRETT^S OESOPHAGUS
  3. TARCEVA [Suspect]
     Active Substance: ERLOTINIB HYDROCHLORIDE
     Indication: DEVICE DISLOCATION
     Dosage: 150 MG, ONCE DAILY (TAKE 1 TABLET BY MOUTH EVERY DAY ON AN EMPTY STOMACH)
     Route: 048
     Dates: start: 201905

REACTIONS (6)
  - Alopecia [Unknown]
  - Diarrhoea [Unknown]
  - Gastrointestinal fungal infection [Unknown]
  - Gastric disorder [Unknown]
  - Cough [Unknown]
  - Gastrointestinal disorder [Unknown]
